FAERS Safety Report 14966779 (Version 1)
Quarter: 2018Q2

REPORT INFORMATION
  Report Type: Spontaneous
  Country: ES (occurrence: ES)
  Receive Date: 20180604
  Receipt Date: 20180604
  Transmission Date: 20180711
  Serious: Yes (Hospitalization, Other)
  Sender: FDA-Public Use
  Company Number: ES-CHEPLA-2026826

PATIENT
  Age: 40 Year
  Sex: Female

DRUGS (3)
  1. XENICAL [Suspect]
     Active Substance: ORLISTAT
     Indication: OBESITY
     Route: 065
  2. ASPIRIN. [Concomitant]
     Active Substance: ASPIRIN
     Indication: CEREBROVASCULAR ACCIDENT
     Route: 065
  3. ORFIDAL [Concomitant]
     Active Substance: LORAZEPAM
     Dosage: IF NEEDED
     Route: 065

REACTIONS (1)
  - Hepatitis [Not Recovered/Not Resolved]

NARRATIVE: CASE EVENT DATE: 20171110
